FAERS Safety Report 18365733 (Version 1)
Quarter: 2020Q4

REPORT INFORMATION
  Report Type: Spontaneous
  Country: PL (occurrence: PL)
  Receive Date: 20201009
  Receipt Date: 20201009
  Transmission Date: 20210114
  Serious: Yes (Other)
  Sender: FDA-Public Use
  Company Number: PL-AMGEN-POLSP2020159623

PATIENT
  Age: 60 Year
  Sex: Male

DRUGS (5)
  1. LEVOFOLIC [Concomitant]
     Active Substance: LEUCOVORIN
     Indication: RECTAL CANCER METASTATIC
     Dosage: 171.2 MILLIGRAM, CYCLICAL  (IV INFUSION OVER 22 HOURS)
     Route: 041
     Dates: start: 20191113
  2. VECTIBIX [Suspect]
     Active Substance: PANITUMUMAB
     Indication: RECTAL CANCER METASTATIC
     Dosage: 384 MILLIGRAM, CYCLICAL
     Route: 042
     Dates: start: 20191113, end: 2020
  3. OXALIPLATIN. [Concomitant]
     Active Substance: OXALIPLATIN
     Indication: RECTAL CANCER METASTATIC
     Dosage: 145.42 MILLIGRAM, CYCLICAL
     Route: 042
     Dates: start: 20191113
  4. 5 FU [Concomitant]
     Active Substance: FLUOROURACIL
     Indication: RECTAL CANCER METASTATIC
     Dosage: 684.8 MILLIGRAM, CYCLICAL (400 MG/M2, DAY 1-DAY 2)
     Route: 040
     Dates: start: 20191113
  5. 5 FU [Concomitant]
     Active Substance: FLUOROURACIL
     Dosage: 1026 MILLIGRAM, CYCLICAL, INFUSION OVER 22 HOURS, DAY 1-DAY 2)
     Route: 041
     Dates: start: 20191113

REACTIONS (2)
  - Rectal cancer metastatic [Unknown]
  - Therapy partial responder [Unknown]

NARRATIVE: CASE EVENT DATE: 20200203
